FAERS Safety Report 9401503 (Version 14)
Quarter: 2018Q4

REPORT INFORMATION
  Report Type: Report from Study
  Country: CA (occurrence: CA)
  Receive Date: 20130716
  Receipt Date: 20181218
  Transmission Date: 20190205
  Serious: Yes (Hospitalization, Other)
  Sender: FDA-Public Use
  Company Number: CA-ROCHE-1246123

PATIENT
  Age: 62 Year
  Sex: Female
  Weight: 50.9 kg

DRUGS (10)
  1. DIPHENHYDRAMINE HCL [Concomitant]
     Active Substance: DIPHENHYDRAMINE HYDROCHLORIDE
     Indication: PREMEDICATION
     Route: 048
     Dates: start: 20090904
  2. ACETAMINOPHEN. [Concomitant]
     Active Substance: ACETAMINOPHEN
     Indication: PREMEDICATION
     Route: 048
     Dates: start: 20090904, end: 20151127
  3. ARTHROTEC [Concomitant]
     Active Substance: DICLOFENAC SODIUM\MISOPROSTOL
     Indication: RHEUMATOID ARTHRITIS
     Route: 048
  4. RITUXAN [Suspect]
     Active Substance: RITUXIMAB
     Dosage: LAST INFUSION ON 26/JUL/2013, 20/FEB/2014, 24/MAR/2014, 14/MAR/2014
     Route: 042
     Dates: start: 20090904
  5. ACETAMINOPHEN. [Concomitant]
     Active Substance: ACETAMINOPHEN
     Route: 048
     Dates: start: 20160713
  6. SPIROZIDE [Concomitant]
     Indication: BLOOD PRESSURE MEASUREMENT
  7. RITUXAN [Suspect]
     Active Substance: RITUXIMAB
     Indication: RHEUMATOID ARTHRITIS
     Dosage: LAST RITUXIMAB INFUSION: 27/NOV/2015.
     Route: 042
     Dates: start: 20080118
  8. RITUXAN [Suspect]
     Active Substance: RITUXIMAB
     Route: 042
     Dates: start: 20160713
  9. SPIRONOLACTONE. [Concomitant]
     Active Substance: SPIRONOLACTONE
     Indication: HYPERTENSION
     Route: 048
  10. METHYLPREDNISOLONE. [Concomitant]
     Active Substance: METHYLPREDNISOLONE
     Indication: PREMEDICATION
     Route: 042
     Dates: start: 20090904

REACTIONS (16)
  - Impaired healing [Recovered/Resolved]
  - Arthropathy [Unknown]
  - Wound infection [Recovered/Resolved]
  - Fall [Unknown]
  - Complication associated with device [Unknown]
  - Joint stiffness [Not Recovered/Not Resolved]
  - Ligament disorder [Recovered/Resolved]
  - Joint destruction [Recovered/Resolved]
  - Impaired healing [Not Recovered/Not Resolved]
  - Ankle deformity [Unknown]
  - Arthritis [Not Recovered/Not Resolved]
  - Complication associated with device [Unknown]
  - Joint swelling [Not Recovered/Not Resolved]
  - Clavicle fracture [Unknown]
  - Medical device change [Not Recovered/Not Resolved]
  - Gastrointestinal viral infection [Unknown]

NARRATIVE: CASE EVENT DATE: 2013
